FAERS Safety Report 9413768 (Version 1)
Quarter: 2013Q3

REPORT INFORMATION
  Report Type: Spontaneous
  Country: None (occurrence: None)
  Receive Date: 20130708
  Receipt Date: 20130708
  Transmission Date: 20140515
  Serious: Yes (Other)
  Sender: FDA-Public Use
  Company Number: 09-AUR-09514

PATIENT
  Age: 54 Year
  Sex: Female

DRUGS (1)
  1. RISPERIDONE (RISPERIDONE) [Suspect]
     Indication: SCHIZOPHRENIA
     Dates: start: 2006

REACTIONS (5)
  - Hyperprolactinaemia [None]
  - Pituitary tumour benign [None]
  - Galactorrhoea [None]
  - Amenorrhoea [None]
  - Intracranial aneurysm [None]
